FAERS Safety Report 4663289-X (Version None)
Quarter: 2005Q2

REPORT INFORMATION
  Report Type: 
  Country: None (occurrence: None)
  Receive Date: 20050513
  Receipt Date: 20050504
  Transmission Date: 20051028
  Serious: Yes (Other)
  Sender: FDA-Public Use
  Company Number: 214245

PATIENT
  Age: 19 Year
  Sex: Female

DRUGS (6)
  1. MABTHERA(RITUXIMAB) CONC FOR SOLUTION FOR INFUSION [Suspect]
     Indication: SYSTEMIC LUPUS ERYTHEMATOSUS
     Dosage: 375 MG/M2, 1/WEEK, INTRAVENOUS
     Route: 042
     Dates: start: 20050228, end: 20050323
  2. CORTICOIDS NOS (CORTICOSTEROIDS NOS) [Concomitant]
  3. ANTIHISTAMINES (ANTIHISTAMINES NOS) [Concomitant]
  4. ENALAPRIL MALEATE [Concomitant]
  5. FUROSEMIDE [Concomitant]
  6. SINTROM [Concomitant]

REACTIONS (1)
  - STEVENS-JOHNSON SYNDROME [None]
